FAERS Safety Report 8581359-0 (Version None)
Quarter: 2012Q3

REPORT INFORMATION
  Report Type: 
  Country: None (occurrence: None)
  Receive Date: 20120809
  Receipt Date: 20120731
  Transmission Date: 20120928
  Serious: Yes (Hospitalization)
  Sender: FDA-Public Use
  Company Number: AU-ASTRAZENECA-2012SE45357

PATIENT
  Age: 53 Year
  Sex: Female

DRUGS (4)
  1. LEVOTHYROXINE SODIUM [Suspect]
  2. METHOTREXATE [Suspect]
  3. CRESTOR [Suspect]
     Route: 048
  4. ARAVA [Suspect]

REACTIONS (7)
  - INFLUENZA LIKE ILLNESS [None]
  - RED BLOOD CELL COUNT DECREASED [None]
  - PLATELET COUNT DECREASED [None]
  - PANCREATITIS [None]
  - WHITE BLOOD CELL COUNT DECREASED [None]
  - PAIN [None]
  - LIPASE INCREASED [None]
